FAERS Safety Report 6829744-9 (Version None)
Quarter: 2010Q3

REPORT INFORMATION
  Report Type: 
  Country: None (occurrence: None)
  Receive Date: 20100706
  Receipt Date: 20100618
  Transmission Date: 20110219
  Serious: Yes (Other)
  Sender: FDA-Public Use
  Company Number: ACO_00797_2010

PATIENT
  Sex: Female
  Weight: 56.6996 kg

DRUGS (3)
  1. AMPYRA [Suspect]
     Indication: MULTIPLE SCLEROSIS
     Dosage: (10 MG BID,   EVERY 12 HOURS AT 10:30 AM AND 10:30 PM ORAL)
     Route: 048
     Dates: start: 20100423
  2. PREDNISONE [Concomitant]
  3. BACLOFEN [Concomitant]

REACTIONS (2)
  - DYSSTASIA [None]
  - PARAESTHESIA [None]
